FAERS Safety Report 19736347 (Version 1)
Quarter: 2021Q3

REPORT INFORMATION
  Report Type: Spontaneous
  Country: US (occurrence: US)
  Receive Date: 20210824
  Receipt Date: 20210824
  Transmission Date: 20211014
  Serious: Yes (Other)
  Sender: FDA-Public Use
  Company Number: US-CIPLA LTD.-2021US05867

PATIENT

DRUGS (3)
  1. FLUOROURACIL. [Suspect]
     Active Substance: FLUOROURACIL
     Indication: OESOPHAGEAL CANCER METASTATIC
     Dosage: UNK
     Route: 065
  2. LEUCOVORIN [FOLINIC ACID] [Suspect]
     Active Substance: LEUCOVORIN
     Indication: OESOPHAGEAL CANCER METASTATIC
     Dosage: UNK
     Route: 065
  3. OXALIPLATIN. [Suspect]
     Active Substance: OXALIPLATIN
     Indication: OESOPHAGEAL CANCER METASTATIC
     Dosage: UNK
     Route: 065

REACTIONS (2)
  - Laryngeal oedema [Unknown]
  - Soft tissue swelling [Unknown]
